FAERS Safety Report 11731777 (Version 1)
Quarter: 2015Q4

REPORT INFORMATION
  Report Type: Spontaneous
  Country: GB (occurrence: GB)
  Receive Date: 20151112
  Receipt Date: 20151112
  Transmission Date: 20160304
  Serious: Yes (Hospitalization)
  Sender: FDA-Public Use
  Company Number: GB-TEVA-606919ACC

PATIENT
  Age: 63 Year
  Sex: Female

DRUGS (4)
  1. VALACICLOVIR [Suspect]
     Active Substance: VALACYCLOVIR HYDROCHLORIDE
     Indication: HERPES SIMPLEX
     Dosage: 6 GRAM DAILY;
     Route: 048
     Dates: start: 20150731
  2. IRINOTECAN [Suspect]
     Active Substance: IRINOTECAN
     Indication: RECTAL CANCER METASTATIC
     Dosage: 180MG/M2 IV INFUSION EVERY 2 WEEKS WITH 20% DOSE REDUCTION FROM CYCLE 3 AFTER TREATMENT DELAYS
     Route: 042
     Dates: start: 20150331
  3. FLUOROURACIL. [Concomitant]
     Active Substance: FLUOROURACIL
  4. CALCIUM FOLINATE [Concomitant]
     Active Substance: LEUCOVORIN CALCIUM

REACTIONS (2)
  - Enteritis [Recovered/Resolved with Sequelae]
  - Diarrhoea [Recovered/Resolved with Sequelae]

NARRATIVE: CASE EVENT DATE: 20150830
